FAERS Safety Report 4915430-9 (Version None)
Quarter: 2006Q1

REPORT INFORMATION
  Report Type: 
  Country: None (occurrence: None)
  Receive Date: 20060113
  Receipt Date: 20051003
  Transmission Date: 20060701
  Serious: No
  Sender: FDA-Public Use
  Company Number: 2005SP003358

PATIENT
  Age: 74 Year
  Sex: Male
  Weight: 61.2356 kg

DRUGS (9)
  1. LUNESTA [Suspect]
     Dosage: 3 MG;HS;ORAL
     Route: 048
     Dates: start: 20050910, end: 20050930
  2. LASIX [Concomitant]
  3. COUMADIN [Concomitant]
  4. PRILOSEC [Concomitant]
  5. EFFEXOR [Concomitant]
  6. LISINOPRIL [Concomitant]
  7. FLOMAX [Concomitant]
  8. LORAZEPAM [Concomitant]
  9. MIRALAX [Concomitant]

REACTIONS (10)
  - BLOOD CREATININE INCREASED [None]
  - BLOOD UREA INCREASED [None]
  - CONFUSIONAL STATE [None]
  - DRUG INEFFECTIVE [None]
  - DYSPEPSIA [None]
  - HALLUCINATION [None]
  - INSOMNIA [None]
  - MUSCLE TWITCHING [None]
  - OEDEMA PERIPHERAL [None]
  - URINARY RETENTION [None]
